FAERS Safety Report 6359847-7 (Version None)
Quarter: 2009Q3

REPORT INFORMATION
  Report Type: 
  Country: None (occurrence: None)
  Receive Date: 20090917
  Receipt Date: 20090908
  Transmission Date: 20100115
  Serious: Yes (Hospitalization, Disabling, Other)
  Sender: FDA-Public Use
  Company Number: B0588201A

PATIENT
  Sex: Male
  Weight: 50 kg

DRUGS (4)
  1. DEROXAT [Suspect]
     Indication: DEPRESSION
     Dosage: 20MG IN THE MORNING
     Route: 048
     Dates: start: 20090201, end: 20090608
  2. OMEPRAZOLE [Suspect]
     Indication: GASTRITIS
     Dosage: 40MG PER DAY
     Route: 048
     Dates: start: 20090516, end: 20090612
  3. INIPOMP [Concomitant]
     Indication: GASTRITIS
     Dosage: 40MG AT NIGHT
     Route: 048
     Dates: start: 20090608, end: 20090608
  4. DOLIPRANE [Concomitant]
     Indication: PAIN
     Dosage: 1000MG THREE TIMES PER DAY
     Route: 048
     Dates: start: 20090608, end: 20090616

REACTIONS (25)
  - ACTIVATED PARTIAL THROMBOPLASTIN TIME PROLONGED [None]
  - APHTHOUS STOMATITIS [None]
  - ASTHENIA [None]
  - CHEILITIS [None]
  - CONJUNCTIVAL HAEMORRHAGE [None]
  - CONJUNCTIVITIS INFECTIVE [None]
  - DERMATITIS BULLOUS [None]
  - DIARRHOEA [None]
  - DYSPHAGIA [None]
  - EATING DISORDER [None]
  - GASTRITIS [None]
  - GENERAL PHYSICAL HEALTH DETERIORATION [None]
  - INFLAMMATION [None]
  - LEUKOCYTOSIS [None]
  - LIP HAEMORRHAGE [None]
  - LUNG DISORDER [None]
  - MOUTH ULCERATION [None]
  - ONYCHOMYCOSIS [None]
  - PRODUCTIVE COUGH [None]
  - SKIN NECROSIS [None]
  - STEVENS-JOHNSON SYNDROME [None]
  - STOMATITIS HAEMORRHAGIC [None]
  - THROMBOCYTOSIS [None]
  - TONGUE ULCERATION [None]
  - WEIGHT DECREASED [None]
